FAERS Safety Report 4325879-3 (Version None)
Quarter: 2004Q1

REPORT INFORMATION
  Report Type: 
  Country: None (occurrence: None)
  Receive Date: 20040324
  Receipt Date: 20040310
  Transmission Date: 20041129
  Serious: Yes (Death)
  Sender: FDA-Public Use
  Company Number: JP_031002020

PATIENT
  Age: 60 Year
  Sex: Male

DRUGS (1)
  1. GEMZAR [Suspect]
     Indication: PANCREATIC CARCINOMA
     Dosage: 1700 MG/OTHER
     Route: 050
     Dates: start: 20030127, end: 20030428

REACTIONS (17)
  - ACUTE RESPIRATORY DISTRESS SYNDROME [None]
  - ANAEMIA [None]
  - AORTIC VALVE STENOSIS [None]
  - BODY TEMPERATURE INCREASED [None]
  - BOWEL SOUNDS ABNORMAL [None]
  - CARDIAC MURMUR [None]
  - CREPITATIONS [None]
  - DISSEMINATED INTRAVASCULAR COAGULATION [None]
  - DYSPNOEA EXERTIONAL [None]
  - HAEMOPTYSIS [None]
  - HEART SOUNDS ABNORMAL [None]
  - LUNG CONSOLIDATION [None]
  - METASTASES TO LUNG [None]
  - MULTI-ORGAN FAILURE [None]
  - OEDEMA PERIPHERAL [None]
  - PULMONARY ALVEOLAR HAEMORRHAGE [None]
  - PULMONARY TOXICITY [None]
